FAERS Safety Report 18889572 (Version 1)
Quarter: 2021Q1

REPORT INFORMATION
  Report Type: Spontaneous
  Country: US (occurrence: US)
  Receive Date: 20210213
  Receipt Date: 20210213
  Transmission Date: 20210420
  Serious: No
  Sender: FDA-Public Use
  Company Number: US-TEVA-2021-US-1877782

PATIENT
  Age: 80 Year
  Sex: Female
  Weight: 51.26 kg

DRUGS (1)
  1. DICLOFENAC MISOPROST 50?0.2MG CAPS ACTAVIS [Suspect]
     Active Substance: DICLOFENAC SODIUM\MISOPROSTOL
     Indication: ARTHRITIS
     Dosage: 50 MG DICLOFENAC, 0.2MG MISOPROSTOL CAPS. 1 TABLET 4 TIMES DAILY AS NEEDED. SHE USUALLY TAKES BETWEE
     Route: 065

REACTIONS (2)
  - Drug ineffective [Unknown]
  - Product substitution issue [Unknown]
